FAERS Safety Report 5272194-X (Version None)
Quarter: 2007Q1

REPORT INFORMATION
  Report Type: 
  Country: None (occurrence: None)
  Receive Date: 20070320
  Receipt Date: 20070320
  Transmission Date: 20070707
  Serious: Yes (Hospitalization)
  Sender: FDA-Public Use
  Company Number: None

PATIENT
  Age: 73 Year
  Sex: Female
  Weight: 65.7716 kg

DRUGS (2)
  1. AVANDIA [Suspect]
     Indication: DIABETES MELLITUS
     Dosage: 4 MG EVERYDAY PO
     Route: 048
     Dates: start: 20020101, end: 20070101
  2. HUMULOG 75/25 INSULIN [Suspect]
     Indication: DIABETES MELLITUS
     Dosage: 16 UNITS EVERYDAY SQ
     Route: 058
     Dates: start: 20010101

REACTIONS (3)
  - DISEASE PROGRESSION [None]
  - SWELLING [None]
  - WEIGHT INCREASED [None]
